FAERS Safety Report 4658596-0 (Version None)
Quarter: 2005Q2

REPORT INFORMATION
  Report Type: 
  Country: None (occurrence: None)
  Receive Date: 20050510
  Receipt Date: 20041008
  Transmission Date: 20051028
  Serious: Yes (Death)
  Sender: FDA-Public Use
  Company Number: 2004S1003044

PATIENT
  Age: 51 Year
  Sex: Female
  Weight: 90.7194 kg

DRUGS (5)
  1. CLOZAPINE [Suspect]
     Indication: SCHIZOAFFECTIVE DISORDER
     Dosage: 300 MG;HS;PO
     Route: 048
     Dates: start: 20011101, end: 20040901
  2. CLARITHROMYCIN [Concomitant]
  3. PROMETHAZINE HCL [Concomitant]
  4. PHENYLEPHRINE HYDROCHLORIDE [Concomitant]
  5. PAROXETINE CR [Concomitant]

REACTIONS (4)
  - BRONCHITIS [None]
  - CARDIAC FAILURE CONGESTIVE [None]
  - PNEUMONIA [None]
  - WEIGHT INCREASED [None]
